FAERS Safety Report 20345551 (Version 2)
Quarter: 2023Q1

REPORT INFORMATION
  Report Type: Spontaneous
  Country: US (occurrence: US)
  Receive Date: 20220118
  Receipt Date: 20230319
  Transmission Date: 20230418
  Serious: No
  Sender: FDA-Public Use
  Company Number: US-ELI_LILLY_AND_COMPANY-US202201005780

PATIENT
  Sex: Female

DRUGS (4)
  1. CYMBALTA [Suspect]
     Active Substance: DULOXETINE HYDROCHLORIDE
     Indication: Product used for unknown indication
     Dosage: UNK UNK, UNKNOWN
     Route: 065
  2. OFEV [Suspect]
     Active Substance: NINTEDANIB
     Indication: Idiopathic pulmonary fibrosis
     Dosage: 150 MG, BID
     Route: 048
     Dates: start: 20210316
  3. OFEV [Suspect]
     Active Substance: NINTEDANIB
     Indication: Interstitial lung disease
  4. DULCOLAX (BISACODYL) [Suspect]
     Active Substance: BISACODYL
     Indication: Constipation
     Dosage: UNK UNK, UNKNOWN
     Route: 065

REACTIONS (21)
  - Dyspnoea [Not Recovered/Not Resolved]
  - Faeces soft [Not Recovered/Not Resolved]
  - Tic [Unknown]
  - Dysphemia [Unknown]
  - Chest discomfort [Not Recovered/Not Resolved]
  - Hunger [Unknown]
  - Pneumonia [Recovered/Resolved]
  - Gastrooesophageal reflux disease [Not Recovered/Not Resolved]
  - Rhinorrhoea [Unknown]
  - Decreased interest [Unknown]
  - Gastrointestinal disorder [Unknown]
  - Constipation [Not Recovered/Not Resolved]
  - Nausea [Recovered/Resolved]
  - Feeling abnormal [Not Recovered/Not Resolved]
  - Vomiting [Recovered/Resolved]
  - Diarrhoea [Unknown]
  - Dry mouth [Recovered/Resolved]
  - Pruritus [Unknown]
  - Fatigue [Unknown]
  - Anxiety [Unknown]
  - Vomiting [Unknown]

NARRATIVE: CASE EVENT DATE: 20210101
